FAERS Safety Report 5900914-7 (Version None)
Quarter: 2008Q3

REPORT INFORMATION
  Report Type: 
  Country: None (occurrence: None)
  Receive Date: 20080929
  Receipt Date: 20080922
  Transmission Date: 20090109
  Serious: Yes (Hospitalization, Other)
  Sender: FDA-Public Use
  Company Number: PHNU2008DE01571

PATIENT
  Sex: Male

DRUGS (5)
  1. ZOMETA [Suspect]
     Indication: METASTASES TO BONE
     Dosage: 4 MG EVERY 4 WEEKS
     Route: 042
     Dates: start: 20051101, end: 20070501
  2. ENALAPRIL MALEATE [Concomitant]
     Dosage: 20 MG/DAY
     Route: 048
     Dates: start: 20000101
  3. VERAPAMIL [Concomitant]
     Dosage: 20 MG/DAY
     Route: 048
     Dates: start: 20000101
  4. CELEBREX [Concomitant]
     Dosage: 200 MG/DAY
     Route: 048
     Dates: start: 20060401
  5. TRENANTONE [Concomitant]
     Dosage: 11.25 MG EVERY 3 MONTH
     Route: 058
     Dates: start: 20051101

REACTIONS (13)
  - ABSCESS ORAL [None]
  - CHEMOTHERAPY [None]
  - ENDODONTIC PROCEDURE [None]
  - GINGIVAL OPERATION [None]
  - LOCAL ANAESTHESIA [None]
  - MUCOSAL EROSION [None]
  - OSTEONECROSIS [None]
  - OSTEOTOMY [None]
  - PLASTIC SURGERY [None]
  - RADIOTHERAPY TO PROSTATE [None]
  - SEQUESTRECTOMY [None]
  - SURGERY [None]
  - TOOTH DISORDER [None]
